FAERS Safety Report 8604407-8 (Version None)
Quarter: 2012Q3

REPORT INFORMATION
  Report Type: 
  Country: None (occurrence: None)
  Receive Date: 20120820
  Receipt Date: 20120809
  Transmission Date: 20120928
  Serious: Yes (Other)
  Sender: FDA-Public Use
  Company Number: BR-US-EMD SERONO, INC.-7145027

PATIENT
  Sex: Female

DRUGS (5)
  1. REBIF [Suspect]
     Indication: SECONDARY PROGRESSIVE MULTIPLE SCLEROSIS
     Dates: start: 20110411, end: 20110422
  2. REBIF [Suspect]
     Route: 058
     Dates: start: 20111213, end: 20120604
  3. REBIF [Suspect]
     Route: 058
     Dates: start: 20110422, end: 20111013
  4. FLUOXETINE HCL [Concomitant]
     Indication: PRODUCT USED FOR UNKNOWN INDICATION
  5. DOMPERIDONE [Concomitant]
     Indication: PRODUCT USED FOR UNKNOWN INDICATION

REACTIONS (5)
  - SKIN NECROSIS [None]
  - OEDEMA PERIPHERAL [None]
  - TENDON DISORDER [None]
  - ANAEMIA [None]
  - ERYTHEMA [None]
